FAERS Safety Report 5625789-5 (Version None)
Quarter: 2008Q1

REPORT INFORMATION
  Report Type: 
  Country: None (occurrence: None)
  Receive Date: 20080213
  Receipt Date: 20080213
  Transmission Date: 20080703
  Serious: No
  Sender: FDA-Public Use
  Company Number: None

PATIENT
  Sex: Male
  Weight: 92.5338 kg

DRUGS (6)
  1. VYTORIN [Suspect]
     Indication: BLOOD CHOLESTEROL ABNORMAL
     Dosage: 1 A DAY
     Dates: start: 20060101, end: 20071001
  2. METFORMIN HCL [Concomitant]
  3. VASERETIC [Concomitant]
  4. PROBENECID/COLCH. [Concomitant]
  5. ALLAPUIRINOL [Concomitant]
  6. GEMFIBROZIL [Concomitant]

REACTIONS (2)
  - ABDOMINAL PAIN UPPER [None]
  - MYALGIA [None]
